FAERS Safety Report 7379551-6 (Version None)
Quarter: 2011Q1

REPORT INFORMATION
  Report Type: 
  Country: None (occurrence: None)
  Receive Date: 20110329
  Receipt Date: 20110321
  Transmission Date: 20110831
  Serious: Yes (Hospitalization, Disabling)
  Sender: FDA-Public Use
  Company Number: US-BIOGENIDEC-2011BI010675

PATIENT
  Age: 53 Year
  Sex: Female
  Weight: 58 kg

DRUGS (11)
  1. ESTRING [Concomitant]
     Indication: MENOPAUSE
  2. KLONOPIN [Concomitant]
     Indication: RESTLESS LEGS SYNDROME
  3. ALPRAZOLAM [Concomitant]
     Indication: ANXIETY
  4. MAXZIDE [Concomitant]
  5. PROVIGIL [Concomitant]
     Indication: FATIGUE
  6. TOVIAZ [Concomitant]
     Indication: NEUROGENIC BLADDER
  7. MIRAPEX [Concomitant]
     Indication: RESTLESS LEGS SYNDROME
  8. BACLOFEN [Concomitant]
  9. TYSABRI [Suspect]
     Indication: MULTIPLE SCLEROSIS
     Route: 042
     Dates: start: 20080722
  10. DALFAMPRIDINE [Concomitant]
  11. PAROXETINE HCL [Concomitant]

REACTIONS (2)
  - PNEUMONIA [None]
  - EMPYEMA [None]
